FAERS Safety Report 14185895 (Version 1)
Quarter: 2017Q4

REPORT INFORMATION
  Report Type: Other
  Country: US (occurrence: US)
  Receive Date: 20171114
  Receipt Date: 20171114
  Transmission Date: 20180321
  Serious: Yes (Life-Threatening, Hospitalization)
  Sender: FDA-Public Use
  Company Number: US-ORCHID HEALTHCARE-2033953

PATIENT
  Age: 16 Year
  Sex: Female

DRUGS (1)
  1. DIVALPROEX SODIUM. [Suspect]
     Active Substance: DIVALPROEX SODIUM
     Route: 065

REACTIONS (4)
  - Electrocardiogram change [Recovered/Resolved]
  - Intentional overdose [Recovered/Resolved]
  - Drug level above therapeutic [Recovered/Resolved]
  - Ischaemia [Recovered/Resolved]
